FAERS Safety Report 21507086 (Version 1)
Quarter: 2022Q4

REPORT INFORMATION
  Report Type: Report from Study
  Country: US (occurrence: US)
  Receive Date: 20221026
  Receipt Date: 20221026
  Transmission Date: 20230113
  Serious: Yes (Other)
  Sender: FDA-Public Use
  Company Number: US-JNJFOC-20221033436

PATIENT
  Sex: Male

DRUGS (1)
  1. REMICADE [Suspect]
     Active Substance: INFLIXIMAB
     Indication: Product used for unknown indication
     Route: 041

REACTIONS (6)
  - Obstruction [Unknown]
  - Intestinal obstruction [Unknown]
  - Psoriasis [Unknown]
  - Adverse event [Unknown]
  - Neoplasm [Unknown]
  - Surgery [Unknown]

NARRATIVE: CASE EVENT DATE: 20190101
